FAERS Safety Report 25724987 (Version 1)
Quarter: 2025Q3

REPORT INFORMATION
  Report Type: Spontaneous
  Country: US (occurrence: US)
  Receive Date: 20250826
  Receipt Date: 20250826
  Transmission Date: 20251020
  Serious: No
  Sender: AMNEAL
  Company Number: US-AMNEAL PHARMACEUTICALS-2025-AMRX-02615

PATIENT
  Sex: Male
  Weight: 68.027 kg

DRUGS (2)
  1. CREXONT [Suspect]
     Active Substance: CARBIDOPA\LEVODOPA
     Indication: Parkinson^s disease
     Route: 048
  2. CREXONT [Suspect]
     Active Substance: CARBIDOPA\LEVODOPA
     Route: 048

REACTIONS (2)
  - Speech disorder [Recovering/Resolving]
  - Drooling [Recovering/Resolving]
